FAERS Safety Report 15489103 (Version 3)
Quarter: 2018Q4

REPORT INFORMATION
  Report Type: Spontaneous
  Country: US (occurrence: US)
  Receive Date: 20181011
  Receipt Date: 20181120
  Transmission Date: 20190205
  Serious: No
  Sender: FDA-Public Use
  Company Number: US-PFIZER INC-2018409363

PATIENT
  Age: 59 Year
  Sex: Male

DRUGS (3)
  1. SUTENT [Suspect]
     Active Substance: SUNITINIB MALATE
     Indication: GASTRIC CANCER
     Dosage: 50 MG, CYCLIC (DAILY, 3 WEEKS ON 1 WEEK OFF)
     Route: 048
     Dates: start: 20180824
  2. SUTENT [Suspect]
     Active Substance: SUNITINIB MALATE
     Indication: SOFT TISSUE SARCOMA
  3. SUTENT [Suspect]
     Active Substance: SUNITINIB MALATE
     Indication: MALIGNANT CONNECTIVE TISSUE NEOPLASM

REACTIONS (7)
  - Oral discomfort [Unknown]
  - Dysgeusia [Unknown]
  - Pyrexia [Unknown]
  - Pain [Unknown]
  - Abdominal discomfort [Unknown]
  - Oral fungal infection [Unknown]
  - Myalgia [Unknown]

NARRATIVE: CASE EVENT DATE: 20180901
